FAERS Safety Report 13774424 (Version 3)
Quarter: 2017Q3

REPORT INFORMATION
  Report Type: Report from Study
  Country: US (occurrence: US)
  Receive Date: 20170721
  Receipt Date: 20170804
  Transmission Date: 20171127
  Serious: Yes (Hospitalization)
  Sender: FDA-Public Use
  Company Number: US-EISAI MEDICAL RESEARCH-EC-2017-028836

PATIENT
  Age: 63 Year
  Sex: Male
  Weight: 109 kg

DRUGS (4)
  1. DRONABINOL. [Concomitant]
     Active Substance: DRONABINOL
  2. LENVIMA [Suspect]
     Active Substance: LENVATINIB
     Indication: RENAL CANCER
     Route: 048
     Dates: start: 20170507, end: 201707
  3. AFINITOR [Concomitant]
     Active Substance: EVEROLIMUS
  4. DEXAMETHASONE. [Concomitant]
     Active Substance: DEXAMETHASONE

REACTIONS (8)
  - Cough [Unknown]
  - Blood pressure increased [Unknown]
  - Upper-airway cough syndrome [Unknown]
  - Decreased appetite [Not Recovered/Not Resolved]
  - Muscle fatigue [Unknown]
  - Ageusia [Not Recovered/Not Resolved]
  - Dehydration [Unknown]
  - Lung infection [Unknown]

NARRATIVE: CASE EVENT DATE: 2017
